FAERS Safety Report 5724144-7 (Version None)
Quarter: 2008Q2

REPORT INFORMATION
  Report Type: 
  Country: None (occurrence: None)
  Receive Date: 20080430
  Receipt Date: 20080428
  Transmission Date: 20081010
  Serious: Yes (Hospitalization)
  Sender: FDA-Public Use
  Company Number: CH-ABBOTT-08P-151-0448021-00

PATIENT
  Age: 68 Year
  Sex: Male

DRUGS (5)
  1. KALETRA [Suspect]
     Indication: DRUG USE FOR UNKNOWN INDICATION
     Route: 048
  2. DOXORUBICIN HCL [Interacting]
     Indication: DRUG USE FOR UNKNOWN INDICATION
     Dosage: 25 MG 2 TOTAL
     Route: 041
     Dates: start: 20080312, end: 20080328
  3. VINBLASTINE SULFATE [Suspect]
     Indication: DRUG USE FOR UNKNOWN INDICATION
     Dosage: 10 MG 2 TOTAL
     Route: 041
     Dates: start: 20080312, end: 20080328
  4. BLEOMYCIN SULFATE [Concomitant]
     Indication: DRUG USE FOR UNKNOWN INDICATION
     Dosage: 15 MG 2 TOTAL
     Route: 041
     Dates: start: 20080312, end: 20080328
  5. DACARBAZINE CITRATE [Concomitant]
     Indication: DRUG USE FOR UNKNOWN INDICATION
     Dosage: 650 MG 2 TOTAL
     Route: 041
     Dates: start: 20080312, end: 20080328

REACTIONS (4)
  - BONE MARROW FAILURE [None]
  - DRUG INTERACTION [None]
  - DRUG TOXICITY [None]
  - PYREXIA [None]
